FAERS Safety Report 18926697 (Version 2)
Quarter: 2021Q3

REPORT INFORMATION
  Report Type: Spontaneous
  Country: US (occurrence: US)
  Receive Date: 20210223
  Receipt Date: 20210913
  Transmission Date: 20211014
  Serious: No
  Sender: FDA-Public Use
  Company Number: US-PFIZER INC-2020455338

PATIENT
  Age: 59 Year
  Sex: Female

DRUGS (1)
  1. XELJANZ XR [Suspect]
     Active Substance: TOFACITINIB CITRATE
     Indication: RHEUMATOID ARTHRITIS
     Dosage: 11 MG, 1X/DAY
     Route: 048
     Dates: start: 202010

REACTIONS (13)
  - Hot flush [Unknown]
  - Anger [Unknown]
  - Asthenia [Unknown]
  - Drug ineffective [Unknown]
  - Condition aggravated [Not Recovered/Not Resolved]
  - Discouragement [Unknown]
  - Frustration tolerance decreased [Unknown]
  - Pain [Unknown]
  - Anxiety [Unknown]
  - Dyspepsia [Unknown]
  - Crying [Unknown]
  - Depression [Unknown]
  - Antisocial behaviour [Unknown]
